FAERS Safety Report 12622760 (Version 1)
Quarter: 2016Q3

REPORT INFORMATION
  Report Type: Spontaneous
  Country: ES (occurrence: ES)
  Receive Date: 20160804
  Receipt Date: 20160804
  Transmission Date: 20161109
  Serious: Yes (Hospitalization, Other)
  Sender: FDA-Public Use
  Company Number: ES-JNJFOC-20160722289

PATIENT

DRUGS (1)
  1. INFLIXIMAB, RECOMBINANT [Suspect]
     Active Substance: INFLIXIMAB
     Indication: COLITIS ULCERATIVE
     Dosage: AT WEEKS 0, 2, 6 FOR INDUCTION AND MAINTAINANCE EVERY 8 WEEKS
     Route: 042

REACTIONS (5)
  - Pneumonia [Recovered/Resolved]
  - Therapeutic response decreased [Unknown]
  - Colectomy [Unknown]
  - Infection [Unknown]
  - Dysplasia [Unknown]
